FAERS Safety Report 25790564 (Version 1)
Quarter: 2025Q3

REPORT INFORMATION
  Report Type: Spontaneous
  Country: US (occurrence: None)
  Receive Date: 20250910
  Receipt Date: 20250910
  Transmission Date: 20251021
  Serious: Yes (Hospitalization)
  Sender: FDA-CTU
  Company Number: None

PATIENT
  Age: 64 Year
  Sex: Female

DRUGS (3)
  1. RILUZOLE [Suspect]
     Active Substance: RILUZOLE
     Indication: Peroneal nerve palsy
     Dosage: FREQUENCY : TWICE A DAY;?
     Route: 048
     Dates: start: 20231117
  2. RILUZOLE [Suspect]
     Active Substance: RILUZOLE
     Indication: Peripheral nerve lesion
  3. RILUZOLE [Suspect]
     Active Substance: RILUZOLE
     Indication: Amyotrophic lateral sclerosis

REACTIONS (2)
  - Pneumonia mycoplasmal [None]
  - Influenza [None]

NARRATIVE: CASE EVENT DATE: 20250904
